FAERS Safety Report 6863125-7 (Version None)
Quarter: 2010Q3

REPORT INFORMATION
  Report Type: 
  Country: None (occurrence: None)
  Receive Date: 20100721
  Receipt Date: 20100713
  Transmission Date: 20110219
  Serious: Yes (Hospitalization)
  Sender: FDA-Public Use
  Company Number: GB-JNJFOC-20100701219

PATIENT
  Age: 57 Year
  Sex: Male

DRUGS (8)
  1. ACETAMINOPHEN AND CODEINE PHOSPHATE [Suspect]
     Indication: PRODUCT USED FOR UNKNOWN INDICATION
     Route: 065
  2. PARACETAMOL [Suspect]
     Route: 048
  3. PARACETAMOL [Suspect]
     Indication: PAIN
     Route: 048
  4. DIAMORPHINE [Suspect]
     Indication: PAIN
     Route: 058
  5. OXYCODONE [Suspect]
     Indication: PRODUCT USED FOR UNKNOWN INDICATION
     Route: 065
  6. EPINEPHRINE [Concomitant]
     Route: 065
  7. MORPHINE [Concomitant]
     Route: 065
  8. PHENAZOCINE [Concomitant]
     Route: 065

REACTIONS (5)
  - ANAPHYLACTOID REACTION [None]
  - ANGIOEDEMA [None]
  - BRONCHOSPASM [None]
  - URTICARIA [None]
  - WHEEZING [None]
